FAERS Safety Report 9664769 (Version 2)
Quarter: 2013Q4

REPORT INFORMATION
  Report Type: Report from Study
  Country: US (occurrence: US)
  Receive Date: 20131101
  Receipt Date: 20131121
  Transmission Date: 20140711
  Serious: Yes (Hospitalization, Other)
  Sender: FDA-Public Use
  Company Number: US-JNJFOC-20131016480

PATIENT
  Age: 53 Year
  Sex: Female
  Weight: 86.18 kg

DRUGS (2)
  1. STELARA [Suspect]
     Indication: PSORIASIS
     Route: 030
     Dates: start: 201210
  2. EFFEXOR [Concomitant]
     Indication: DEPRESSION
     Route: 048
     Dates: start: 2011

REACTIONS (5)
  - Kidney infection [Recovered/Resolved]
  - Enterocolitis infectious [Recovered/Resolved]
  - Ear infection [Recovered/Resolved]
  - Weight increased [Not Recovered/Not Resolved]
  - Incorrect route of drug administration [Unknown]
